FAERS Safety Report 4489662-0 (Version None)
Quarter: 2004Q4

REPORT INFORMATION
  Report Type: 
  Country: None (occurrence: None)
  Receive Date: 20041101
  Receipt Date: 20041025
  Transmission Date: 20050328
  Serious: Yes (Other)
  Sender: FDA-Public Use
  Company Number: PHBS2004DE14278

PATIENT
  Age: 38 Year
  Sex: Male

DRUGS (3)
  1. CYCLOSPORINE [Suspect]
     Indication: BONE MARROW TRANSPLANT
     Dosage: 150 MG/D
     Route: 065
  2. PREDNISOLONE [Suspect]
     Indication: BONE MARROW TRANSPLANT
     Dosage: 10 MG, Q48H
     Route: 065
  3. INFECTION PROPHYLAXIS [Concomitant]

REACTIONS (8)
  - BLISTER [None]
  - DERMATITIS BULLOUS [None]
  - ERYTHEMA [None]
  - LINEAR IGA DISEASE [None]
  - PRURITUS [None]
  - PURPURA [None]
  - SKIN BURNING SENSATION [None]
  - SKIN LESION [None]
